FAERS Safety Report 9830745 (Version 1)
Quarter: 2014Q1

REPORT INFORMATION
  Report Type: Spontaneous
  Country: FI (occurrence: FI)
  Receive Date: 20140120
  Receipt Date: 20140120
  Transmission Date: 20141002
  Serious: Yes (Other)
  Sender: FDA-Public Use
  Company Number: FI-NAPPMUNDI-GBR-2014-0016860

PATIENT
  Age: 55 Year
  Sex: Male

DRUGS (1)
  1. NORSPAN 5 MCG/HR DEPOTLAASTARI [Suspect]
     Indication: PRODUCT USED FOR UNKNOWN INDICATION
     Dosage: 5 MCG, Q1H
     Route: 062

REACTIONS (4)
  - Loss of consciousness [Unknown]
  - Fall [Unknown]
  - Tinnitus [Unknown]
  - Dizziness [Unknown]
